FAERS Safety Report 22379072 (Version 3)
Quarter: 2024Q3

REPORT INFORMATION
  Report Type: Report from Study
  Country: ZA (occurrence: ZA)
  Receive Date: 20230529
  Receipt Date: 20240923
  Transmission Date: 20241016
  Serious: No
  Sender: ROCHE
  Company Number: ZA-ROCHE-3354323

PATIENT
  Sex: Female

DRUGS (1)
  1. OCREVUS [Suspect]
     Active Substance: OCRELIZUMAB
     Indication: Relapsing-remitting multiple sclerosis
     Dosage: THERAFTER EVERY SIX MONTHS
     Route: 041
     Dates: start: 20221129

REACTIONS (17)
  - Influenza [Unknown]
  - Fatigue [Unknown]
  - Hypertonia [Unknown]
  - Areflexia [Unknown]
  - Dysmetria [Unknown]
  - Tremor [Unknown]
  - Balance disorder [Unknown]
  - Tandem gait test abnormal [Unknown]
  - Magnetic resonance imaging head abnormal [Unknown]
  - Sinus disorder [Unknown]
  - Cerebellar tonsillar ectopia [Unknown]
  - White matter lesion [Unknown]
  - Enlarged cerebral perivascular spaces [Unknown]
  - Spinal osteoarthritis [Unknown]
  - Intervertebral disc protrusion [Unknown]
  - Multiple sclerosis [Unknown]
  - Intervertebral disc degeneration [Unknown]
